FAERS Safety Report 23511127 (Version 1)
Quarter: 2024Q1

REPORT INFORMATION
  Report Type: Spontaneous
  Country: US (occurrence: US)
  Receive Date: 20240212
  Receipt Date: 20240212
  Transmission Date: 20240409
  Serious: Yes (Other)
  Sender: FDA-Public Use
  Company Number: US-BRISTOL-MYERS SQUIBB COMPANY-2024-021584

PATIENT
  Age: 69 Year
  Sex: Female

DRUGS (1)
  1. REVLIMID [Suspect]
     Active Substance: LENALIDOMIDE
     Indication: Plasma cell myeloma
     Dosage: TAKE 1 CAPSULE BY MOUTH WHOLE W/ WATER DAILY FOR 21 DAYS ON FOLLOWED BY 7 DAYS OFF. DO NOT BREAK, CH
     Route: 048
     Dates: start: 20210120

REACTIONS (1)
  - COVID-19 [Recovering/Resolving]
